FAERS Safety Report 25077837 (Version 1)
Quarter: 2025Q1

REPORT INFORMATION
  Report Type: Spontaneous
  Country: ES (occurrence: ES)
  Receive Date: 20250314
  Receipt Date: 20250314
  Transmission Date: 20250409
  Serious: Yes (Life-Threatening, Hospitalization)
  Sender: SANDOZ
  Company Number: ES-SANDOZ-SDZ2025ES015945

PATIENT
  Age: 40 Year
  Sex: Male
  Weight: 85 kg

DRUGS (1)
  1. ADALIMUMAB [Suspect]
     Active Substance: ADALIMUMAB
     Indication: Colitis ulcerative
     Route: 065
     Dates: start: 20220406, end: 202204

REACTIONS (2)
  - Vasculitis [Unknown]
  - Meningitis listeria [Unknown]

NARRATIVE: CASE EVENT DATE: 20220413
